FAERS Safety Report 6701842-X (Version None)
Quarter: 2010Q2

REPORT INFORMATION
  Report Type: 
  Country: None (occurrence: None)
  Receive Date: 20100427
  Receipt Date: 20100421
  Transmission Date: 20101027
  Serious: Yes (Hospitalization, Other)
  Sender: FDA-Public Use
  Company Number: ALL1-2010-02356

PATIENT
  Age: 89 Year
  Sex: Female
  Weight: 45.5 kg

DRUGS (1)
  1. FOSRENOL [Suspect]
     Indication: HYPERPHOSPHATAEMIA
     Dosage: 1 X/DAY;QD, ORAL
     Route: 048
     Dates: start: 20100416

REACTIONS (5)
  - FOREIGN BODY [None]
  - OESOPHAGEAL HAEMORRHAGE [None]
  - PRODUCT QUALITY ISSUE [None]
  - PRODUCT SIZE ISSUE [None]
  - WRONG TECHNIQUE IN DRUG USAGE PROCESS [None]
